FAERS Safety Report 6836718-0 (Version None)
Quarter: 2010Q3

REPORT INFORMATION
  Report Type: 
  Country: None (occurrence: None)
  Receive Date: 20100713
  Receipt Date: 20080919
  Transmission Date: 20110219
  Serious: Yes (Other)
  Sender: FDA-Public Use
  Company Number: US-PFIZER INC-2008071844

PATIENT
  Sex: Male
  Weight: 106.81 kg

DRUGS (13)
  1. VIAGRA [Suspect]
     Indication: ERECTILE DYSFUNCTION
  2. LASIX [Concomitant]
  3. LOVASTATIN [Concomitant]
  4. DIOVAN [Concomitant]
  5. METOPROLOL [Concomitant]
  6. NORVASC [Concomitant]
  7. LEXAPRO [Concomitant]
  8. PROTONIX [Concomitant]
  9. GEMFIBROZIL [Concomitant]
  10. POTASSIUM CHLORIDE [Concomitant]
  11. ACETYLSALICYLIC ACID [Concomitant]
  12. CENTRUM SILVER [Concomitant]
  13. ZYRTEC [Concomitant]

REACTIONS (2)
  - DRUG INEFFECTIVE [None]
  - TYPE 2 DIABETES MELLITUS [None]
